FAERS Safety Report 24416713 (Version 1)
Quarter: 2024Q4

REPORT INFORMATION
  Report Type: Spontaneous
  Country: US (occurrence: US)
  Receive Date: 20241009
  Receipt Date: 20241009
  Transmission Date: 20250115
  Serious: Yes (Other)
  Sender: INSUD PHARMA
  Company Number: US-INSUD PHARMA-2409US07677

PATIENT

DRUGS (1)
  1. EPHEDRINE SULFATE [Suspect]
     Active Substance: EPHEDRINE SULFATE
     Indication: Hypotension
     Dosage: UNK
     Route: 065

REACTIONS (5)
  - Left-to-right cardiac shunt [Unknown]
  - Condition aggravated [Unknown]
  - Bradycardia [Unknown]
  - Dyspnoea [Unknown]
  - Oedema peripheral [Unknown]
